FAERS Safety Report 9356278 (Version 2)
Quarter: 2013Q3

REPORT INFORMATION
  Report Type: Spontaneous
  Country: KR (occurrence: None)
  Receive Date: 20130614
  Receipt Date: 20130705
  Transmission Date: 20140515
  Serious: Yes (Death)
  Sender: FDA-Public Use
  Company Number: JP-2013-12100

PATIENT
  Age: 73 Year
  Sex: Male

DRUGS (6)
  1. OPC-13013 [Suspect]
     Indication: CORONARY ARTERY DISEASE
     Route: 048
     Dates: start: 20110527, end: 20130521
  2. LORELCO [Suspect]
     Indication: CORONARY ARTERY DISEASE
     Route: 048
     Dates: start: 20110527, end: 20130521
  3. CARVEDILOL (CARVEDILOL) [Concomitant]
  4. ASPIRIN (ACETYLSALICYLIC ACID) [Concomitant]
  5. SIMVASTATIN (SIMVASTITIN) [Concomitant]
  6. EXFORGE (AMLODIPINE BESILATE, VALSARTAN) [Concomitant]

REACTIONS (5)
  - Fall [None]
  - Loss of consciousness [None]
  - Sudden cardiac death [None]
  - Chest discomfort [None]
  - Chest discomfort [None]
